FAERS Safety Report 7461824-X (Version None)
Quarter: 2011Q2

REPORT INFORMATION
  Report Type: 
  Country: None (occurrence: None)
  Receive Date: 20110506
  Receipt Date: 20090416
  Transmission Date: 20111010
  Serious: Yes (Death, Hospitalization, Other)
  Sender: FDA-Public Use
  Company Number: US-BAYER-200918324NA

PATIENT
  Age: 58 Year
  Sex: Male
  Weight: 66.667 kg

DRUGS (27)
  1. TRASYLOL [Suspect]
     Indication: CORONARY ARTERY BYPASS
     Dosage: 1 ML, UNK, INTIAL TEST DOSE
     Route: 042
     Dates: start: 20040512, end: 20040512
  2. TRASYLOL [Suspect]
     Indication: MITRAL VALVE REPLACEMENT
     Dosage: 50ML THROUGH OUT SURGERY
     Route: 042
     Dates: start: 20040512, end: 20040512
  3. VERSED [Concomitant]
     Dosage: UNK
     Dates: start: 20040512
  4. AMIODARONE [Concomitant]
     Dosage: 150
     Dates: start: 20040512
  5. ATENOLOL [Concomitant]
     Indication: ANGINA PECTORIS
     Dosage: LONG TERM USE
  6. TRASYLOL [Suspect]
     Indication: MITRAL VALVE REPAIR
     Dosage: 200ML IV OVER 30 MINUTES
     Route: 042
     Dates: start: 20040512, end: 20040512
  7. NITROGLYCERIN [Concomitant]
     Dosage: LONG TERM USE
  8. SOLU-CORTEF [Concomitant]
     Dosage: UNK
     Dates: start: 20040512
  9. VANCOMYCIN [Concomitant]
     Dosage: 1 G, UNK
     Route: 042
     Dates: start: 20040512
  10. PLASMANATE [Concomitant]
     Dosage: UNK
     Dates: start: 20040512
  11. FOSINOPRIL SODIUM [Concomitant]
     Indication: HYPERTENSION
     Dosage: LONG TERM USE
  12. PROTAMINE SULFATE [Concomitant]
     Dosage: 250 MG, UNK
     Route: 042
     Dates: start: 20040512
  13. ETOMIDATE [Concomitant]
     Dosage: UNK
     Route: 042
     Dates: start: 20040512
  14. FENTANYL [Concomitant]
     Dosage: UNK
     Route: 042
     Dates: start: 20040512
  15. INSULIN [Concomitant]
     Dosage: UNK
     Route: 042
     Dates: start: 20040512
  16. PENTOTHAL [Concomitant]
     Dosage: UNK
     Dates: start: 20040512
  17. HEPARIN [Concomitant]
     Dosage: 25000 UNITS
     Route: 042
  18. PLASMA [Concomitant]
     Dosage: 4 U, UNK
     Route: 042
     Dates: start: 20040512
  19. ACETYLSALICYLIC ACID SRT [Concomitant]
     Dosage: LONG TERM USE
  20. ACETAMINOPHEN [Concomitant]
     Dosage: LONG TERM USE
  21. MAGNESIUM SULFATE [Concomitant]
     Dosage: 2 G, UNK
     Route: 042
     Dates: start: 20040512
  22. EPINEPHRINE [Concomitant]
     Dosage: 5 MG, UNK
     Route: 042
     Dates: start: 20040512
  23. ISOFLURANE [Concomitant]
     Dosage: UNK
     Route: 042
     Dates: start: 20040512
  24. RED BLOOD CELLS [Concomitant]
     Dosage: 3 U, UNK
     Route: 042
     Dates: start: 20040512
  25. PLATELETS [Concomitant]
     Dosage: 4 PACKS
     Route: 042
  26. AMLODIPINE [Concomitant]
     Dosage: LONG TERM USE
  27. CRYOPRECIPITATES [Concomitant]
     Dosage: 30 PACKS
     Route: 042
     Dates: start: 20040512

REACTIONS (5)
  - PAIN [None]
  - RENAL FAILURE ACUTE [None]
  - UNEVALUABLE EVENT [None]
  - RENAL FAILURE [None]
  - INJURY [None]
